FAERS Safety Report 21937320 (Version 1)
Quarter: 2023Q1

REPORT INFORMATION
  Report Type: Spontaneous
  Country: SE (occurrence: SE)
  Receive Date: 20230201
  Receipt Date: 20230201
  Transmission Date: 20230417
  Serious: Yes (Other)
  Sender: FDA-Public Use
  Company Number: None

PATIENT
  Sex: Female

DRUGS (3)
  1. ENALAPRIL [Suspect]
     Active Substance: ENALAPRIL
     Indication: Chronic kidney disease
     Dates: start: 20221202, end: 20221208
  2. Kalciumkarbonat [Concomitant]
     Indication: Product used for unknown indication
     Dosage: 500 MG
     Dates: start: 20211111
  3. Iron p.o [Concomitant]
     Indication: Product used for unknown indication
     Dates: start: 20211123

REACTIONS (2)
  - Vomiting [Recovered/Resolved]
  - Acute kidney injury [Recovered/Resolved]

NARRATIVE: CASE EVENT DATE: 20211207
